FAERS Safety Report 9097355 (Version 2)
Quarter: 2013Q1

REPORT INFORMATION
  Report Type: Spontaneous
  Country: DE (occurrence: DE)
  Receive Date: 20130212
  Receipt Date: 20130319
  Transmission Date: 20140127
  Serious: Yes (Other)
  Sender: FDA-Public Use
  Company Number: DE-PFIZER INC-2013050315

PATIENT
  Age: 37 Year
  Sex: Male
  Weight: 85 kg

DRUGS (6)
  1. LYRICA [Suspect]
     Indication: GENERALISED ANXIETY DISORDER
     Dosage: 100 MG, DAILY
     Route: 048
     Dates: start: 20120131, end: 20120312
  2. LYRICA [Suspect]
     Dosage: 300 MG, 1X/DAY
     Route: 048
     Dates: start: 20120312, end: 20120330
  3. LYRICA [Suspect]
     Dosage: 600 MG, 1X/DAY
     Route: 048
     Dates: start: 20120330, end: 201211
  4. OLANZAPINE [Concomitant]
     Dosage: 10 MG, 2X/DAY
  5. CITALOPRAM [Concomitant]
     Dosage: 20 MG, 1X/DAY
  6. OPIPRAMOL [Concomitant]
     Dosage: 100 MG, UNK

REACTIONS (4)
  - Drug abuse [Recovered/Resolved]
  - Dizziness [Recovered/Resolved]
  - Gait disturbance [Recovered/Resolved]
  - Autonomic nervous system imbalance [Recovered/Resolved]
